FAERS Safety Report 9097811 (Version 2)
Quarter: 2013Q4

REPORT INFORMATION
  Report Type: Spontaneous
  Country: GB (occurrence: GB)
  Receive Date: 20130212
  Receipt Date: 20131016
  Transmission Date: 20140711
  Serious: Yes (Hospitalization)
  Sender: FDA-Public Use
  Company Number: GB-PFIZER INC-2013050410

PATIENT
  Age: 81 Year
  Sex: Male
  Weight: 80 kg

DRUGS (13)
  1. LINEZOLID [Suspect]
     Indication: POST PROCEDURAL INFECTION
  2. LINEZOLID [Interacting]
     Dosage: 600 MG, 2X/DAY
     Route: 048
     Dates: start: 20130108, end: 20130123
  3. HUMULIN [Interacting]
     Indication: TYPE 1 DIABETES MELLITUS
     Dosage: UNK
  4. WARFARIN [Concomitant]
  5. VALSARTAN [Concomitant]
  6. FUROSEMIDE [Concomitant]
  7. DIGOXIN [Concomitant]
  8. CARVEDILOL [Concomitant]
  9. PRAVASTATIN [Concomitant]
  10. VANCOMYCIN [Concomitant]
     Indication: POST PROCEDURAL INFECTION
     Dosage: UNK
     Route: 042
     Dates: start: 20121203
  11. GLYCERYL TRINITRATE [Concomitant]
  12. CO-CODAMOL [Concomitant]
  13. METOCLOPRAMIDE [Concomitant]

REACTIONS (4)
  - Drug interaction [Not Recovered/Not Resolved]
  - Hypoglycaemia [Not Recovered/Not Resolved]
  - Dyskinesia [Unknown]
  - Unresponsive to stimuli [Unknown]
